FAERS Safety Report 6855548-7 (Version None)
Quarter: 2010Q3

REPORT INFORMATION
  Report Type: 
  Country: None (occurrence: None)
  Receive Date: 20100719
  Receipt Date: 20100705
  Transmission Date: 20110219
  Serious: Yes (Death, Other)
  Sender: FDA-Public Use
  Company Number: AR-ABBOTT-10P-007-0651460-00

PATIENT
  Age: 80 Year
  Sex: Female
  Weight: 65 kg

DRUGS (5)
  1. HUMIRA [Suspect]
     Indication: RHEUMATOID ARTHRITIS
     Route: 058
     Dates: start: 20091009
  2. HUMIRA [Suspect]
     Route: 058
     Dates: start: 20100321
  3. LEFLUNOMIDE [Concomitant]
     Indication: RHEUMATOID ARTHRITIS
     Route: 048
     Dates: start: 20090601
  4. SULFAZALAZINE [Concomitant]
     Indication: PRODUCT USED FOR UNKNOWN INDICATION
  5. LEFLUNOMIDE [Concomitant]
     Indication: PRODUCT USED FOR UNKNOWN INDICATION

REACTIONS (11)
  - ALVEOLITIS [None]
  - CARDIAC FAILURE [None]
  - DRUG INEFFECTIVE [None]
  - DYSPNOEA [None]
  - GASTROENTERITIS [None]
  - JOINT STIFFNESS [None]
  - JOINT SWELLING [None]
  - POLYARTHRITIS [None]
  - PULMONARY FIBROSIS [None]
  - RALES [None]
  - SYNOVITIS [None]
